FAERS Safety Report 6241953-9 (Version None)
Quarter: 2009Q2

REPORT INFORMATION
  Report Type: 
  Country: None (occurrence: None)
  Receive Date: 20090622
  Receipt Date: 20090604
  Transmission Date: 20091009
  Serious: Yes (Death)
  Sender: FDA-Public Use
  Company Number: 2008AL011090

PATIENT
  Age: 70 Year
  Sex: Female

DRUGS (13)
  1. DIGOXIN [Suspect]
     Indication: TACHYCARDIA
     Dosage: 0.25MG, DAILY, PO
     Route: 048
     Dates: start: 20071001
  2. AMLODIPINE [Concomitant]
  3. POTASSIUM CHLORIDE [Concomitant]
  4. LIPITOR [Concomitant]
  5. FUROSEMIDE INTENSOL [Concomitant]
  6. TYLENOL (CAPLET) [Concomitant]
  7. SEPTRA [Concomitant]
  8. LASIX [Concomitant]
  9. LOTREL [Concomitant]
  10. LISINOPRIL [Concomitant]
  11. AMBIEN [Concomitant]
  12. TRIAMTERENE [Concomitant]
  13. NICOTINE [Concomitant]

REACTIONS (17)
  - CARDIAC ARREST [None]
  - CONVULSION [None]
  - DECUBITUS ULCER [None]
  - DEPRESSION [None]
  - DYSPNOEA [None]
  - ECONOMIC PROBLEM [None]
  - ELECTROMECHANICAL DISSOCIATION [None]
  - HYPOTENSION [None]
  - ILL-DEFINED DISORDER [None]
  - MULTIPLE INJURIES [None]
  - OLIGURIA [None]
  - PAIN [None]
  - PULMONARY EMBOLISM [None]
  - SEPTIC SHOCK [None]
  - SINUS TACHYCARDIA [None]
  - THERAPEUTIC AGENT TOXICITY [None]
  - URINARY TRACT INFECTION [None]
